FAERS Safety Report 11898954 (Version 2)
Quarter: 2016Q1

REPORT INFORMATION
  Report Type: Spontaneous
  Country: US (occurrence: US)
  Receive Date: 20160108
  Receipt Date: 20160226
  Transmission Date: 20160526
  Serious: No
  Sender: FDA-Public Use
  Company Number: US-PFIZER INC-2015450360

PATIENT
  Age: 9 Year
  Sex: Male
  Weight: 38 kg

DRUGS (4)
  1. QUILLIVANT XR [Suspect]
     Active Substance: METHYLPHENIDATE HYDROCHLORIDE
     Dosage: 7 MG, DAILY
  2. QUILLIVANT XR [Suspect]
     Active Substance: METHYLPHENIDATE HYDROCHLORIDE
     Indication: ATTENTION DEFICIT/HYPERACTIVITY DISORDER
     Dosage: 5MLS LIQUID ONCE A DAY
     Route: 048
     Dates: start: 20151014
  3. VITAMIN D [Concomitant]
     Active Substance: CHOLECALCIFEROL
     Indication: ONYCHOCLASIS
     Dosage: ONE DROPPER A DAY
     Route: 048
     Dates: start: 2015
  4. FISH OIL [Concomitant]
     Active Substance: FISH OIL
     Indication: NUTRITIONAL SUPPLEMENTATION
     Dosage: 1 TABLESPOON EVERY DAY
     Route: 048
     Dates: start: 2013

REACTIONS (2)
  - Drug dose omission [Unknown]
  - Drug ineffective [Unknown]
